FAERS Safety Report 11832717 (Version 2)
Quarter: 2015Q4

REPORT INFORMATION
  Report Type: Spontaneous
  Country: JP (occurrence: JP)
  Receive Date: 20151214
  Receipt Date: 20151223
  Transmission Date: 20160305
  Serious: Yes (Other)
  Sender: FDA-Public Use
  Company Number: JP-GLAXOSMITHKLINE-JP2015JPN173888

PATIENT
  Sex: Male

DRUGS (1)
  1. VALTREX [Suspect]
     Active Substance: VALACYCLOVIR HYDROCHLORIDE
     Route: 048

REACTIONS (7)
  - Malaise [Unknown]
  - Decreased appetite [Unknown]
  - Dysgeusia [Unknown]
  - Cardiomyopathy [Unknown]
  - Weight decreased [Unknown]
  - Renal failure [Unknown]
  - Cardiac failure [Unknown]
